FAERS Safety Report 9772971 (Version 2)
Quarter: 2013Q4

REPORT INFORMATION
  Report Type: Report from Study
  Country: US (occurrence: US)
  Receive Date: 20131219
  Receipt Date: 20131219
  Transmission Date: 20140711
  Serious: Yes (Death, Life-Threatening, Hospitalization, Other)
  Sender: FDA-Public Use
  Company Number: US-JNJFOC-20130817379

PATIENT
  Age: 87 Year
  Sex: Male
  Weight: 87.09 kg

DRUGS (14)
  1. IBRUTINIB [Suspect]
     Route: 048
  2. IBRUTINIB [Suspect]
     Indication: MANTLE CELL LYMPHOMA
     Route: 048
     Dates: start: 20130805, end: 20130905
  3. ALLOPURINOL [Concomitant]
  4. TAMSULOSIN [Concomitant]
  5. SIMVASTATIN [Concomitant]
  6. DONEPEZIL [Concomitant]
  7. QUETIAPINE FUMARATE [Concomitant]
  8. OMEPRAZOLE [Concomitant]
  9. ASPIRIN [Concomitant]
  10. VITAMIN D [Concomitant]
  11. CENTURY SENIOR MULTIVITAMIN [Concomitant]
  12. CRANBERRY EXTRACT [Concomitant]
  13. MEGACE [Concomitant]
  14. ZOFRAN [Concomitant]

REACTIONS (3)
  - Renal failure [Fatal]
  - Anaemia [Fatal]
  - Adenocarcinoma gastric [Fatal]
